FAERS Safety Report 22155433 (Version 2)
Quarter: 2023Q2

REPORT INFORMATION
  Report Type: Report from Study
  Country: IT (occurrence: None)
  Receive Date: 20230330
  Receipt Date: 20230405
  Transmission Date: 20230721
  Serious: Yes (Hospitalization, Other)
  Sender: FDA-Public Use
  Company Number: IT-ROCHE-2326478

PATIENT
  Age: 56 Year
  Sex: Female
  Weight: 52.6 kg

DRUGS (73)
  1. GLOFITAMAB [Suspect]
     Active Substance: GLOFITAMAB
     Indication: B-cell lymphoma
     Dosage: DATE OF DOSE: 23/MAY/2019 AT 10:58?DATE OF MOST RECENT DOSE: 13/JUN/2019 AT 11:22?DATE OF MOST RECEN
     Route: 042
     Dates: start: 20190523
  2. OBINUTUZUMAB [Suspect]
     Active Substance: OBINUTUZUMAB
     Indication: B-cell lymphoma
     Dosage: ON 08/MAY/2019, PATIENT RECEIVED MOST RECENT DOSE AT 11:23 AM  TO 3:35 PM PRIOR TO SAE.
     Route: 042
     Dates: start: 20190508
  3. TOCILIZUMAB [Suspect]
     Active Substance: TOCILIZUMAB
     Indication: Cytokine release syndrome
     Dosage: DATE OF MOST RECENT DOSE: 24/MAY/2019 AT 06:33 AM TO 7:33 AM?DATE OF MOST RECENT DOSE OF TOCILIZUMAB
     Route: 042
     Dates: start: 20190524
  4. ATEZOLIZUMAB [Suspect]
     Active Substance: ATEZOLIZUMAB
     Indication: B-cell lymphoma
     Dosage: DATE OF MOST RECENT DOSE OF ATEZOLIZUMAB PRIOR TO AE ONSET 3RD CRS: 03/JUL/2019 AT 10:12 TO 11:10 AM
     Route: 042
     Dates: start: 20190703
  5. LANSOPRAZOLE [Concomitant]
     Active Substance: LANSOPRAZOLE
     Indication: Gastrointestinal disorder prophylaxis
     Dates: start: 201705, end: 20190724
  6. LANSOPRAZOLE [Concomitant]
     Active Substance: LANSOPRAZOLE
     Dates: start: 20190808
  7. VALACYCLOVIR HYDROCHLORIDE [Concomitant]
     Active Substance: VALACYCLOVIR HYDROCHLORIDE
     Indication: Antiviral prophylaxis
     Dates: start: 201803, end: 20190610
  8. LAMIVUDINE [Concomitant]
     Active Substance: LAMIVUDINE
     Indication: Prophylaxis
     Dates: start: 20190508, end: 20190520
  9. LAMIVUDINE [Concomitant]
     Active Substance: LAMIVUDINE
     Dates: start: 20190527, end: 20190722
  10. KEPPRA [Concomitant]
     Active Substance: LEVETIRACETAM
     Indication: Prophylaxis
     Dates: start: 20190508, end: 20190722
  11. KEPPRA [Concomitant]
     Active Substance: LEVETIRACETAM
     Dates: start: 20190729, end: 20190806
  12. KEPPRA [Concomitant]
     Active Substance: LEVETIRACETAM
     Dates: start: 20190722, end: 20190726
  13. PAROXETINE [Concomitant]
     Active Substance: PAROXETINE
     Dates: start: 2014
  14. SIMVASTATIN [Concomitant]
     Active Substance: SIMVASTATIN
     Indication: Dyslipidaemia
     Dates: start: 2008
  15. CARVEDILOL [Concomitant]
     Active Substance: CARVEDILOL
     Indication: Tachycardia
     Dates: start: 201804
  16. CHOLECALCIFEROL [Concomitant]
     Active Substance: CHOLECALCIFEROL
     Indication: Vitamin D deficiency
     Dates: start: 20190412, end: 20190722
  17. CHOLECALCIFEROL [Concomitant]
     Active Substance: CHOLECALCIFEROL
     Dates: start: 20190408, end: 20190722
  18. AZITHROMYCIN [Concomitant]
     Active Substance: AZITHROMYCIN
     Indication: Antibiotic prophylaxis
     Dates: start: 20190530, end: 20190603
  19. ALLOPURINOL [Concomitant]
     Active Substance: ALLOPURINOL
     Indication: Prophylaxis
     Dates: start: 20190523, end: 20190524
  20. ALLOPURINOL [Concomitant]
     Active Substance: ALLOPURINOL
     Dates: start: 20190603, end: 20190607
  21. ALLOPURINOL [Concomitant]
     Active Substance: ALLOPURINOL
     Dates: start: 20190614, end: 20190617
  22. ALLOPURINOL [Concomitant]
     Active Substance: ALLOPURINOL
     Dates: start: 20190707, end: 20190710
  23. ALLOPURINOL [Concomitant]
     Active Substance: ALLOPURINOL
     Dates: start: 20190704, end: 20190705
  24. ALBUMIN HUMAN [Concomitant]
     Active Substance: ALBUMIN HUMAN
     Dates: start: 20190524, end: 20190530
  25. ALBUMIN HUMAN [Concomitant]
     Active Substance: ALBUMIN HUMAN
     Dates: start: 20190614, end: 20190622
  26. ALBUMIN HUMAN [Concomitant]
     Active Substance: ALBUMIN HUMAN
     Dates: start: 20190724, end: 20190730
  27. ALBUMIN HUMAN [Concomitant]
     Active Substance: ALBUMIN HUMAN
     Dates: start: 20190705, end: 20190708
  28. FUROSEMIDE [Concomitant]
     Active Substance: FUROSEMIDE
     Indication: Prophylaxis
     Dates: start: 20190602, end: 20190603
  29. FUROSEMIDE [Concomitant]
     Active Substance: FUROSEMIDE
     Dates: start: 20190614, end: 20190614
  30. FUROSEMIDE [Concomitant]
     Active Substance: FUROSEMIDE
     Dates: start: 20190620, end: 20190620
  31. FUROSEMIDE [Concomitant]
     Active Substance: FUROSEMIDE
     Dates: start: 20190706, end: 20190708
  32. FUROSEMIDE [Concomitant]
     Active Substance: FUROSEMIDE
     Dates: start: 20190705, end: 20190708
  33. CEFTRIAXONE [Concomitant]
     Active Substance: CEFTRIAXONE
     Indication: Antibiotic prophylaxis
     Dates: start: 20190603, end: 20190617
  34. AMPHOTERICIN B [Concomitant]
     Active Substance: AMPHOTERICIN B
     Indication: Prophylaxis
     Dates: start: 20190524, end: 20190617
  35. POLYETHYLENE GLYCOLS [Concomitant]
     Active Substance: POLYETHYLENE GLYCOLS
     Indication: Blood electrolytes
     Dates: start: 20190605, end: 20190607
  36. POLYETHYLENE GLYCOLS [Concomitant]
     Active Substance: POLYETHYLENE GLYCOLS
     Dates: start: 20190626, end: 20190710
  37. POLYETHYLENE GLYCOLS [Concomitant]
     Active Substance: POLYETHYLENE GLYCOLS
     Dates: start: 20190626, end: 20190713
  38. HUMAN RED BLOOD CELL [Concomitant]
     Active Substance: HUMAN RED BLOOD CELL
     Indication: Anaemia
     Dates: start: 20190525, end: 20190525
  39. HUMAN RED BLOOD CELL [Concomitant]
     Active Substance: HUMAN RED BLOOD CELL
     Dates: start: 20190615, end: 20190615
  40. HUMAN RED BLOOD CELL [Concomitant]
     Active Substance: HUMAN RED BLOOD CELL
     Dates: start: 20190623, end: 20190623
  41. POTASSIUM CHLORIDE [Concomitant]
     Active Substance: POTASSIUM CHLORIDE
     Dates: start: 20190610, end: 20190611
  42. POTASSIUM CHLORIDE [Concomitant]
     Active Substance: POTASSIUM CHLORIDE
     Dates: start: 20190624, end: 20190702
  43. POTASSIUM CHLORIDE [Concomitant]
     Active Substance: POTASSIUM CHLORIDE
     Dates: start: 20190707, end: 20190710
  44. POTASSIUM CHLORIDE [Concomitant]
     Active Substance: POTASSIUM CHLORIDE
     Dates: start: 20190722, end: 20190807
  45. POTASSIUM CHLORIDE [Concomitant]
     Active Substance: POTASSIUM CHLORIDE
     Dates: start: 20190722, end: 20190811
  46. POTASSIUM CHLORIDE [Concomitant]
     Active Substance: POTASSIUM CHLORIDE
     Dates: start: 20190624, end: 20190702
  47. MAGNESIUM SULFATE [Concomitant]
     Active Substance: MAGNESIUM SULFATE
     Dates: start: 20190627, end: 20190703
  48. MAGNESIUM SULFATE [Concomitant]
     Active Substance: MAGNESIUM SULFATE
     Dates: start: 20190724, end: 20190726
  49. MAGNESIUM SULFATE [Concomitant]
     Active Substance: MAGNESIUM SULFATE
     Dates: start: 20190729, end: 20190730
  50. PIPERACILLIN SODIUM\TAZOBACTAM SODIUM [Concomitant]
     Active Substance: PIPERACILLIN SODIUM\TAZOBACTAM SODIUM
     Dates: start: 20190704, end: 20190705
  51. ENOXAPARIN [Concomitant]
     Active Substance: ENOXAPARIN
     Dates: start: 20190702, end: 20190724
  52. POLYGELINE [Concomitant]
     Active Substance: POLYGELINE
     Dates: start: 20190703, end: 20190703
  53. HUMAN RED BLOOD CELL [Concomitant]
     Active Substance: HUMAN RED BLOOD CELL
     Indication: Anaemia
     Dates: start: 20190615, end: 20190615
  54. HUMAN RED BLOOD CELL [Concomitant]
     Active Substance: HUMAN RED BLOOD CELL
     Dates: start: 20190623, end: 20190623
  55. ACYCLOVIR [Concomitant]
     Active Substance: ACYCLOVIR
     Indication: Prophylaxis
     Dates: start: 20190702, end: 20190722
  56. AZITHROMYCIN [Concomitant]
     Active Substance: AZITHROMYCIN
     Indication: Antibiotic prophylaxis
     Dates: start: 20190530, end: 20190603
  57. OMEPRAZOLE [Concomitant]
     Active Substance: OMEPRAZOLE
     Dates: start: 20190724, end: 20190807
  58. RASBURICASE [Concomitant]
     Active Substance: RASBURICASE
     Dates: start: 20190722, end: 20190807
  59. RASBURICASE [Concomitant]
     Active Substance: RASBURICASE
     Dates: start: 20190722, end: 20190726
  60. RASBURICASE [Concomitant]
     Active Substance: RASBURICASE
     Dates: start: 20190523, end: 20190525
  61. LACTULOSE [Concomitant]
     Active Substance: LACTULOSE
     Dates: start: 20190726, end: 20190807
  62. POLIGELINA [Concomitant]
     Dates: start: 20190703, end: 20190703
  63. ACYCLOVIR [Concomitant]
     Active Substance: ACYCLOVIR
     Dates: start: 20190702, end: 20190722
  64. OXATOMIDE [Concomitant]
     Active Substance: OXATOMIDE
     Indication: Pruritus
     Dates: start: 20190508, end: 20190513
  65. CETIRIZINE [Concomitant]
     Active Substance: CETIRIZINE HYDROCHLORIDE
     Indication: Pruritus
     Dates: start: 20190530, end: 20190604
  66. CETIRIZINE [Concomitant]
     Active Substance: CETIRIZINE HYDROCHLORIDE
     Dates: start: 20190702, end: 20190721
  67. CARBOCYSTEINE [Concomitant]
     Active Substance: CARBOCYSTEINE
     Indication: Cough
     Dates: start: 20190606, end: 20190617
  68. GANCICLOVIR [Concomitant]
     Active Substance: GANCICLOVIR
     Indication: Cytomegalovirus infection reactivation
     Dates: start: 20190610, end: 20190702
  69. ZERINOL [Concomitant]
     Indication: Pruritus
     Dates: start: 20190518, end: 20190522
  70. BECLOMETHASONE DIPROPIONATE [Concomitant]
     Active Substance: BECLOMETHASONE DIPROPIONATE
     Indication: Cough
     Dates: start: 20190622, end: 20190713
  71. METHYLPREDNISOLONE [Concomitant]
     Active Substance: METHYLPREDNISOLONE
     Route: 042
     Dates: start: 20190523, end: 20190523
  72. METHYLPREDNISOLONE [Concomitant]
     Active Substance: METHYLPREDNISOLONE
     Route: 042
     Dates: start: 20190613, end: 20190613
  73. METHYLPREDNISOLONE [Concomitant]
     Active Substance: METHYLPREDNISOLONE
     Route: 042
     Dates: start: 20190703, end: 20190703

REACTIONS (5)
  - Tumour flare [Recovered/Resolved]
  - Cytokine release syndrome [Recovered/Resolved]
  - Cytokine release syndrome [Recovered/Resolved]
  - Cytokine release syndrome [Recovered/Resolved]
  - Tumour flare [Recovered/Resolved]

NARRATIVE: CASE EVENT DATE: 20190523
